FAERS Safety Report 7680579-7 (Version None)
Quarter: 2011Q3

REPORT INFORMATION
  Report Type: 
  Country: None (occurrence: None)
  Receive Date: 20110812
  Receipt Date: 20110805
  Transmission Date: 20111222
  Serious: Yes (Disabling, Other)
  Sender: FDA-Public Use
  Company Number: JP-PFIZER INC-2011147162

PATIENT
  Age: 85 Year
  Sex: Female

DRUGS (2)
  1. CATALIN [Suspect]
     Indication: OPEN ANGLE GLAUCOMA
     Dosage: 1 GTT, 4X/DAY
     Route: 047
     Dates: start: 20091022, end: 20110628
  2. XALATAN [Suspect]
     Indication: OPEN ANGLE GLAUCOMA
     Dosage: 1 GTT, 1X/DAY
     Route: 047
     Dates: start: 20080603, end: 20110629

REACTIONS (2)
  - PUNCTATE KERATITIS [None]
  - CORNEAL EPITHELIUM DEFECT [None]
